FAERS Safety Report 8105292-3 (Version None)
Quarter: 2012Q1

REPORT INFORMATION
  Report Type: 
  Country: None (occurrence: None)
  Receive Date: 20120201
  Receipt Date: 20120118
  Transmission Date: 20120608
  Serious: Yes (Other)
  Sender: FDA-Public Use
  Company Number: US-WATSON-2012-01312

PATIENT
  Age: 21 Year
  Sex: Male

DRUGS (4)
  1. VANCOMYCIN HYCHLORIDE [Suspect]
     Indication: EOSINOPHILIA
  2. VANCOMYCIN HYCHLORIDE [Suspect]
     Indication: CELLULITIS
     Route: 042
  3. CLINDAMYCIN HCL [Suspect]
     Indication: CELLULITIS
     Dosage: WHILE HOSPITALIZED
     Route: 042
  4. CLINDAMYCIN HCL [Suspect]
     Indication: EOSINOPHILIA
     Dosage: UPON DISCHARGE FROM HOSPITAL X1 WEEK
     Route: 048

REACTIONS (3)
  - CELLULITIS [None]
  - EOSINOPHILIA [None]
  - DRUG EFFECT DECREASED [None]
